FAERS Safety Report 18543364 (Version 7)
Quarter: 2021Q1

REPORT INFORMATION
  Report Type: Report from Study
  Country: KR (occurrence: KR)
  Receive Date: 20201125
  Receipt Date: 20210210
  Transmission Date: 20210419
  Serious: Yes (Life-Threatening, Other)
  Sender: FDA-Public Use
  Company Number: KR-CELLTRION INC.-2020KR032729

PATIENT

DRUGS (25)
  1. NANOXEL [Suspect]
     Active Substance: PACLITAXEL
     Dosage: 75 MG, CYCLIC
     Route: 042
  2. HERZUMA [Suspect]
     Active Substance: TRASTUZUMAB-PKRB
     Dosage: 294 MG, CYCLIC
     Route: 042
     Dates: start: 20201120
  3. HERZUMA [Suspect]
     Active Substance: TRASTUZUMAB-PKRB
     Dosage: 294 MG, CYCLIC
     Route: 042
     Dates: start: 20201214
  4. NANOXEL [Suspect]
     Active Substance: PACLITAXEL
     Dosage: 80.5 MG, CYCLIC
     Route: 042
  5. NANOXEL [Suspect]
     Active Substance: PACLITAXEL
     Dosage: 112.5 MG, CYCLIC
     Route: 042
  6. NANOXEL [Suspect]
     Active Substance: PACLITAXEL
     Dosage: 75 MG, CYCLIC
     Route: 042
  7. HERZUMA [Suspect]
     Active Substance: TRASTUZUMAB-PKRB
     Dosage: 294 MG, CYCLIC
     Route: 042
     Dates: start: 20201007
  8. HERZUMA [Suspect]
     Active Substance: TRASTUZUMAB-PKRB
     Dosage: 294 MG, CYCLIC
     Route: 042
     Dates: start: 20210106
  9. NANOXEL [Suspect]
     Active Substance: PACLITAXEL
     Dosage: 121 MG, CYCLIC
     Route: 042
  10. MACPERAN [Concomitant]
     Active Substance: METOCLOPRAMIDE HYDROCHLORIDE
     Indication: GASTRITIS PROPHYLAXIS
     Dosage: 5 MILLIGRAM, QD
     Route: 042
     Dates: start: 20190518
  11. HERZUMA [Suspect]
     Active Substance: TRASTUZUMAB-PKRB
     Dosage: 342 MG, CYCLIC
     Route: 042
     Dates: start: 20200821
  12. HERZUMA [Suspect]
     Active Substance: TRASTUZUMAB-PKRB
     Dosage: 294 MG, CYCLIC
     Route: 042
     Dates: start: 20201030
  13. NANOXEL [Suspect]
     Active Substance: PACLITAXEL
     Indication: SALIVARY GLAND CANCER
     Dosage: 121 MG, CYCLIC
     Route: 042
     Dates: start: 20200729
  14. PARIET [Interacting]
     Active Substance: RABEPRAZOLE SODIUM
     Indication: GASTRITIS PROPHYLAXIS
     Dosage: 10 MILLIGRAM (1 TAB), QD
     Route: 048
     Dates: start: 20200831
  15. NANOXEL [Suspect]
     Active Substance: PACLITAXEL
     Dosage: 75 MG, CYCLIC
     Route: 042
  16. URSA [Concomitant]
     Active Substance: URSODIOL
     Dosage: 100 MILLIGRAM (1 TAB), BID
     Route: 048
     Dates: start: 20200831
  17. CRAVIT [Concomitant]
     Active Substance: LEVOFLOXACIN
     Indication: GASTRITIS PROPHYLAXIS
     Dosage: 500 MILLIGRAM (1 TAB), QD
     Route: 048
     Dates: start: 20200821
  18. MUCOSTA [Concomitant]
     Active Substance: REBAMIPIDE
     Indication: GASTRITIS PROPHYLAXIS
     Dosage: 100 MILLIGRAM (1 TAB), BID
     Route: 048
     Dates: start: 20200831
  19. HERZUMA [Suspect]
     Active Substance: TRASTUZUMAB-PKRB
     Indication: SALIVARY GLAND CANCER
     Dosage: 456 MG, CYCLIC
     Route: 042
     Dates: start: 20200729, end: 20200801
  20. HERZUMA [Suspect]
     Active Substance: TRASTUZUMAB-PKRB
     Dosage: 342 MG, CYCLIC
     Route: 042
     Dates: start: 20200914
  21. GASTER [Concomitant]
     Active Substance: FAMOTIDINE
     Indication: GASTRITIS PROPHYLAXIS
     Dosage: 20 MILLIGRAM (1 VIAL), QD
     Route: 042
     Dates: start: 20190513
  22. URSA [Concomitant]
     Active Substance: URSODIOL
     Indication: GASTRITIS PROPHYLAXIS
     Dosage: 100 MILLIGRAM (1 TAB), TID
     Route: 048
     Dates: start: 20200821, end: 20200830
  23. LASIX [Concomitant]
     Active Substance: FUROSEMIDE
     Indication: PLEURAL EFFUSION
     Dosage: 40 MILLIGRAM, QD
     Route: 048
     Dates: start: 20201211, end: 20201214
  24. MAGNESIUM OXIDE. [Concomitant]
     Active Substance: MAGNESIUM OXIDE
     Indication: GASTRITIS PROPHYLAXIS
     Dosage: 2 TABLET, TID
     Route: 048
     Dates: start: 20200612
  25. LASIX [Concomitant]
     Active Substance: FUROSEMIDE
     Dosage: 20 MILLIGRAM, QD
     Route: 048
     Dates: start: 20201215, end: 20210106

REACTIONS (2)
  - Neutrophil count decreased [Recovered/Resolved]
  - Off label use [Unknown]

NARRATIVE: CASE EVENT DATE: 20200828
